FAERS Safety Report 6109496-0 (Version None)
Quarter: 2009Q1

REPORT INFORMATION
  Report Type: 
  Country: None (occurrence: None)
  Receive Date: 20090306
  Receipt Date: 20090223
  Transmission Date: 20090719
  Serious: Yes (Hospitalization)
  Sender: FDA-Public Use
  Company Number: TRP_06100_2009

PATIENT
  Sex: Male

DRUGS (2)
  1. RIBASPHERE [Suspect]
     Indication: HEPATITIS C
     Dosage: 1000 MG
     Dates: start: 20081211
  2. PEGASYS [Suspect]
     Indication: HEPATITIS C
     Dosage: 180 MCG,
     Dates: start: 20081211

REACTIONS (1)
  - GALLBLADDER DISORDER [None]
